FAERS Safety Report 9258786 (Version 1)
Quarter: 2013Q2

REPORT INFORMATION
  Report Type: Spontaneous
  Country: US (occurrence: US)
  Receive Date: 20130426
  Receipt Date: 20130426
  Transmission Date: 20140414
  Serious: No
  Sender: FDA-Public Use
  Company Number: US-009507513-1304USA014876

PATIENT
  Sex: Female

DRUGS (3)
  1. JANUVIA [Suspect]
     Indication: TYPE 2 DIABETES MELLITUS
     Dosage: 100 MG, QD
     Route: 048
     Dates: start: 201301
  2. METFORMIN [Concomitant]
  3. VITAMINS (UNSPECIFIED) [Concomitant]

REACTIONS (2)
  - Weight decreased [Unknown]
  - Skin disorder [Unknown]
